FAERS Safety Report 6509783-8 (Version None)
Quarter: 2009Q4

REPORT INFORMATION
  Report Type: 
  Country: None (occurrence: None)
  Receive Date: 20091222
  Receipt Date: 20091211
  Transmission Date: 20100525
  Serious: Yes (Other)
  Sender: FDA-Public Use
  Company Number: US-AMGEN-QUU379666

PATIENT
  Sex: Male

DRUGS (5)
  1. ENBREL [Suspect]
     Indication: PSORIASIS
     Route: 058
     Dates: start: 20040101
  2. NORVASC [Concomitant]
  3. LISINOPRIL [Concomitant]
  4. PREVACID [Concomitant]
  5. LABETALOL HCL [Concomitant]

REACTIONS (2)
  - AORTIC ANEURYSM [None]
  - MYALGIA [None]
